FAERS Safety Report 12185788 (Version 1)
Quarter: 2016Q1

REPORT INFORMATION
  Report Type: Spontaneous
  Country: US (occurrence: US)
  Receive Date: 20160316
  Receipt Date: 20160316
  Transmission Date: 20160526
  Serious: No
  Sender: FDA-Public Use
  Company Number: US-BIOGEN-2016BI00195443

PATIENT
  Sex: Female

DRUGS (1)
  1. TECFIDERA [Suspect]
     Active Substance: DIMETHYL FUMARATE
     Indication: MULTIPLE SCLEROSIS
     Route: 048
     Dates: start: 20140418

REACTIONS (7)
  - Gait disturbance [Unknown]
  - Joint injury [Unknown]
  - Fall [Recovered/Resolved]
  - Tremor [Unknown]
  - Hypersomnia [Unknown]
  - Multiple sclerosis relapse [Unknown]
  - Face injury [Recovered/Resolved]
